FAERS Safety Report 17737310 (Version 2)
Quarter: 2021Q1

REPORT INFORMATION
  Report Type: Report from Study
  Country: None (occurrence: CA)
  Receive Date: 20200503
  Receipt Date: 20210331
  Transmission Date: 20210419
  Serious: Yes (Other)
  Sender: FDA-Public Use
  Company Number: CA-ABBVIE-20K-028-3386776-00

PATIENT
  Age: 42 Year
  Sex: Male

DRUGS (2)
  1. HUMIRA [Suspect]
     Active Substance: ADALIMUMAB
     Indication: CROHN^S DISEASE
     Route: 058
     Dates: start: 20190607, end: 20200423
  2. HUMIRA [Suspect]
     Active Substance: ADALIMUMAB
     Route: 058

REACTIONS (13)
  - Asthenia [Recovering/Resolving]
  - Impaired work ability [Not Recovered/Not Resolved]
  - Therapeutic response shortened [Unknown]
  - Crohn^s disease [Recovering/Resolving]
  - Abdominal discomfort [Not Recovered/Not Resolved]
  - Inappropriate schedule of product administration [Recovering/Resolving]
  - Impaired quality of life [Not Recovered/Not Resolved]
  - Choking [Recovering/Resolving]
  - General symptom [Unknown]
  - Abdominal distension [Recovering/Resolving]
  - Oral herpes [Unknown]
  - General physical health deterioration [Unknown]
  - Insomnia [Unknown]

NARRATIVE: CASE EVENT DATE: 202004
